FAERS Safety Report 5374073-6 (Version None)
Quarter: 2007Q2

REPORT INFORMATION
  Report Type: 
  Country: None (occurrence: None)
  Receive Date: 20070627
  Receipt Date: 20070613
  Transmission Date: 20071010
  Serious: Yes (Other)
  Sender: FDA-Public Use
  Company Number: 2007US-08065

PATIENT
  Age: 45 Year
  Sex: Female

DRUGS (2)
  1. ISOTRETINOIN [Suspect]
     Indication: ACNE CYSTIC
     Dosage: 20 MG, 3 CAPSULES (60 MG) DAILY, ORAL
     Route: 048
     Dates: start: 20070307, end: 20070418
  2. ISOTRETINOIN [Suspect]
     Indication: ACNE CYSTIC
     Dosage: 20 MG, 3 CAPSULES (60 MG) DAILY, ORAL
     Route: 048
     Dates: start: 20070612

REACTIONS (1)
  - BLADDER OPERATION [None]
